FAERS Safety Report 4979480-9 (Version None)
Quarter: 2006Q2

REPORT INFORMATION
  Report Type: 
  Country: None (occurrence: None)
  Receive Date: 20060421
  Receipt Date: 20060412
  Transmission Date: 20061013
  Serious: Yes (Death, Hospitalization)
  Sender: FDA-Public Use
  Company Number: US-SANOFI-SYNTHELABO-A03200602384

PATIENT
  Sex: Male

DRUGS (13)
  1. PLAVIX [Suspect]
     Indication: ARTERIAL DISORDER
     Dosage: UNK
     Route: 048
     Dates: start: 20040101
  2. SINEMET [Concomitant]
     Dosage: UNK
     Route: 048
     Dates: start: 20040101
  3. PROTONIX [Concomitant]
     Route: 048
  4. PREDNISONE [Concomitant]
     Route: 048
  5. NITROGLYCERIN [Concomitant]
     Route: 060
  6. MICRO-K [Concomitant]
     Route: 048
  7. LASIX [Concomitant]
     Route: 048
  8. FLOMAX [Concomitant]
     Route: 048
  9. ISOSORBIDE [Concomitant]
     Route: 048
  10. DIGOXIN [Concomitant]
     Dosage: 0.125MG QOD IF PULSE ABOVE 60
     Route: 048
  11. COREG [Concomitant]
     Route: 048
  12. DARVOCET [Concomitant]
     Route: 048
  13. ALBUTEROL [Concomitant]
     Dosage: 5MG/5ML VIA NEBULIZER
     Route: 048

REACTIONS (1)
  - MYOCARDIAL INFARCTION [None]
